FAERS Safety Report 15361950 (Version 1)
Quarter: 2018Q4

REPORT INFORMATION
  Report Type: Spontaneous
  Country: None (occurrence: US)
  Receive Date: 20180907
  Receipt Date: 20180907
  Transmission Date: 20190204
  Serious: No
  Sender: FDA-Public Use
  Company Number: US-TAIHO ONCOLOGY  INC-EU-2018-01298

PATIENT
  Sex: Female
  Weight: 74.46 kg

DRUGS (5)
  1. PRAVASTATIN. [Concomitant]
     Active Substance: PRAVASTATIN
     Dosage: NI
  2. LIDOCAINE-PRILOCAINE [Concomitant]
     Active Substance: LIDOCAINE\PRILOCAINE
     Dosage: NI
  3. LISINOPRIL. [Concomitant]
     Active Substance: LISINOPRIL
     Dosage: NI
  4. LONSURF [Suspect]
     Active Substance: TIPIRACIL HYDROCHLORIDE\TRIFLURIDINE
     Indication: COLON CANCER
     Dosage: CYCLE 1
     Route: 048
     Dates: start: 20180628, end: 20180810
  5. ELIQUIS [Concomitant]
     Active Substance: APIXABAN
     Dosage: NI

REACTIONS (1)
  - Disease progression [Unknown]

NARRATIVE: CASE EVENT DATE: 2018
